FAERS Safety Report 9815231 (Version 2)
Quarter: 2014Q1

REPORT INFORMATION
  Report Type: Spontaneous
  Country: US (occurrence: US)
  Receive Date: 20140114
  Receipt Date: 20140127
  Transmission Date: 20141002
  Serious: Yes (Hospitalization)
  Sender: FDA-Public Use
  Company Number: US-BIOGENIDEC-2014BI001234

PATIENT
  Sex: Male
  Weight: 81 kg

DRUGS (16)
  1. TECFIDERA [Suspect]
     Indication: PRODUCT USED FOR UNKNOWN INDICATION
     Route: 048
  2. TECFIDERA [Suspect]
     Indication: PRODUCT USED FOR UNKNOWN INDICATION
     Route: 048
  3. HALCION [Concomitant]
  4. ZOLOFT [Concomitant]
  5. GABAPENTIN [Concomitant]
  6. SIMVASTATIN [Concomitant]
  7. PRILOSEC [Concomitant]
  8. NAMENDA [Concomitant]
  9. MOBIC [Concomitant]
  10. VITAMIN D3 [Concomitant]
  11. FISH OIL [Concomitant]
  12. ARICEPT [Concomitant]
  13. CALCIUM [Concomitant]
  14. ASA [Concomitant]
  15. IMODIUM [Concomitant]
  16. CRANBERRY [Concomitant]

REACTIONS (1)
  - Gastrooesophageal reflux disease [Unknown]
